FAERS Safety Report 6925848-0 (Version None)
Quarter: 2010Q3

REPORT INFORMATION
  Report Type: 
  Country: None (occurrence: None)
  Receive Date: 20100811
  Receipt Date: 20100727
  Transmission Date: 20110219
  Serious: Yes (Hospitalization)
  Sender: FDA-Public Use
  Company Number: A-CH2010-38428

PATIENT
  Age: 8 Month
  Sex: Female

DRUGS (4)
  1. BOSENTAN TABLET 62.5 MG JPN (BOSENTAN) TABLET [Suspect]
     Indication: PULMONARY ARTERIAL HYPERTENSION
     Dosage: MG/KG, BID, ORAL 3 MG/KG, BID, ORAL
     Route: 048
  2. DIURETICS [Concomitant]
  3. ASPIRIN [Concomitant]
  4. BERAPROST [Concomitant]

REACTIONS (1)
  - PROTEIN-LOSING GASTROENTEROPATHY [None]
